FAERS Safety Report 14787477 (Version 2)
Quarter: 2020Q3

REPORT INFORMATION
  Report Type: Spontaneous
  Country: ES (occurrence: ES)
  Receive Date: 20180421
  Receipt Date: 20200919
  Transmission Date: 20201102
  Serious: Yes (Hospitalization, Other)
  Sender: FDA-Public Use
  Company Number: ES-AUROBINDO-AUR-APL-2018-020594

PATIENT
  Age: 81 Year
  Sex: Male

DRUGS (6)
  1. RIVASTIGMINE. [Suspect]
     Active Substance: RIVASTIGMINE
     Indication: PRODUCT USED FOR UNKNOWN INDICATION
     Dosage: 0?2?0
     Route: 062
     Dates: start: 20170415
  2. PRISTIQ EXTENDED?RELEASE [Suspect]
     Active Substance: DESVENLAFAXINE SUCCINATE
     Indication: PRODUCT USED FOR UNKNOWN INDICATION
     Dosage: 1?0?0 ()
     Route: 048
     Dates: start: 20170415
  3. IMIDAPRIL [Concomitant]
     Active Substance: IMIDAPRIL
     Indication: PRODUCT USED FOR UNKNOWN INDICATION
     Dosage: 10 MG, 1.0?0 ()
     Route: 048
     Dates: start: 20170415
  4. LORAZEPAM. [Concomitant]
     Active Substance: LORAZEPAM
     Indication: PRODUCT USED FOR UNKNOWN INDICATION
     Dosage: 1?1?1
     Route: 048
     Dates: start: 20170415
  5. QUETIAPINE. [Suspect]
     Active Substance: QUETIAPINE
     Dosage: 1?2?1
     Route: 048
     Dates: start: 20170415
  6. DEPRAX (TRAZADONE HYDROCHLORIDE) [Suspect]
     Active Substance: TRAZODONE HYDROCHLORIDE
     Indication: PRODUCT USED FOR UNKNOWN INDICATION
     Dosage: 0?0?1
     Route: 048
     Dates: start: 20170415

REACTIONS (1)
  - Rhabdomyolysis [Recovered/Resolved]

NARRATIVE: CASE EVENT DATE: 20170618
